FAERS Safety Report 21692448 (Version 2)
Quarter: 2024Q4

REPORT INFORMATION
  Report Type: Spontaneous
  Country: US (occurrence: US)
  Receive Date: 20221207
  Receipt Date: 20241118
  Transmission Date: 20250115
  Serious: Yes (Other)
  Sender: AMGEN
  Company Number: US-AMGEN-USASP2022209578

PATIENT
  Age: 58 Year
  Sex: Female

DRUGS (6)
  1. BEVACIZUMAB [Suspect]
     Active Substance: BEVACIZUMAB
     Indication: Endometrial cancer
     Dosage: 15 MILLIGRAM/KG
     Route: 065
  2. PREDNISONE [Suspect]
     Active Substance: PREDNISONE
     Indication: Immune-complex membranoproliferative glomerulonephritis
     Dosage: 40 MILLIGRAM
     Route: 065
  3. CARBOPLATIN [Concomitant]
     Active Substance: CARBOPLATIN
     Indication: Endometrial cancer
     Dosage: UNK
     Route: 065
  4. PACLITAXEL [Concomitant]
     Active Substance: PACLITAXEL
     Indication: Endometrial cancer
     Dosage: UNK
     Route: 065
  5. DOCETAXEL [Concomitant]
     Active Substance: DOCETAXEL
     Indication: Endometrial cancer
     Dosage: UNK
     Route: 065
  6. DEXAMETHASONE [Concomitant]
     Active Substance: DEXAMETHASONE
     Indication: Endometrial cancer
     Dosage: UNK
     Route: 065

REACTIONS (3)
  - Glomerulonephritis membranoproliferative [Recovering/Resolving]
  - Drug effective for unapproved indication [Unknown]
  - Off label use [Unknown]
